FAERS Safety Report 15353742 (Version 1)
Quarter: 2018Q3

REPORT INFORMATION
  Report Type: Spontaneous
  Country: US (occurrence: US)
  Receive Date: 20180830
  Receipt Date: 20180830
  Transmission Date: 20181010
  Serious: Yes (Hospitalization)
  Sender: FDA-Public Use
  Company Number: None

PATIENT
  Age: 45 Year
  Sex: Female

DRUGS (12)
  1. FLUOXETINE 40MG [Concomitant]
     Active Substance: FLUOXETINE HYDROCHLORIDE
  2. VICTOZA [Concomitant]
     Active Substance: LIRAGLUTIDE
  3. GLIPIZIDE 5MG [Concomitant]
     Active Substance: GLIPIZIDE
  4. ZOFRAN 4MG ODT [Concomitant]
  5. IMODIUM MS [Concomitant]
  6. CLONIDINE 0.1MG [Concomitant]
     Active Substance: CLONIDINE
  7. IBUPROFEN 100/5ML [Concomitant]
  8. FOLIC ACID 1MG [Concomitant]
  9. LIPITOR [Concomitant]
     Active Substance: ATORVASTATIN CALCIUM
  10. SIMPONI [Suspect]
     Active Substance: GOLIMUMAB
     Indication: SPONDYLOARTHROPATHY
     Dosage: ?          OTHER FREQUENCY:Q MONTH;?
     Route: 058
     Dates: start: 20180410
  11. TYLENOL [Concomitant]
     Active Substance: ACETAMINOPHEN
  12. BELBUCA 150MCG [Concomitant]

REACTIONS (1)
  - Eating disorder [None]

NARRATIVE: CASE EVENT DATE: 20180828
